FAERS Safety Report 4978114-7 (Version None)
Quarter: 2006Q2

REPORT INFORMATION
  Report Type: 
  Country: None (occurrence: None)
  Receive Date: 20060417
  Receipt Date: 20060405
  Transmission Date: 20061013
  Serious: Yes (Hospitalization, Other)
  Sender: FDA-Public Use
  Company Number: 2005BI007421

PATIENT
  Age: 57 Year
  Sex: Female
  Weight: 87.9978 kg

DRUGS (1)
  1. AVONEX [Suspect]
     Indication: MULTIPLE SCLEROSIS
     Dosage: 30 UG;QW;IM
     Route: 030
     Dates: start: 20030807

REACTIONS (3)
  - BREAST CANCER FEMALE [None]
  - INFECTION [None]
  - PYREXIA [None]
